FAERS Safety Report 19711881 (Version 1)
Quarter: 2021Q3

REPORT INFORMATION
  Report Type: Spontaneous
  Country: US (occurrence: US)
  Receive Date: 20210816
  Receipt Date: 20210816
  Transmission Date: 20211014
  Serious: No
  Sender: FDA-Public Use
  Company Number: US-TEVA-2021-US-1942792

PATIENT
  Age: 80 Year
  Sex: Male
  Weight: 104.87 kg

DRUGS (1)
  1. LISINOPRIL. [Suspect]
     Active Substance: LISINOPRIL
     Route: 065

REACTIONS (2)
  - Cough [Unknown]
  - Asthenia [Unknown]
